FAERS Safety Report 16094856 (Version 1)
Quarter: 2019Q1

REPORT INFORMATION
  Report Type: Spontaneous
  Country: US (occurrence: US)
  Receive Date: 20190218
  Receipt Date: 20190218
  Transmission Date: 20190418
  Serious: No
  Sender: FDA-Public Use
  Company Number: None

PATIENT
  Sex: Male

DRUGS (1)
  1. HUMIRA [Suspect]
     Active Substance: ADALIMUMAB
     Dosage: ?          OTHER DOSE:40MG/.08ML;?
     Route: 058
     Dates: start: 20171128

REACTIONS (4)
  - Arthralgia [None]
  - Pain in extremity [None]
  - Peripheral swelling [None]
  - Joint swelling [None]
